FAERS Safety Report 8503775-5 (Version None)
Quarter: 2012Q3

REPORT INFORMATION
  Report Type: 
  Country: None (occurrence: None)
  Receive Date: 20120711
  Receipt Date: 20120702
  Transmission Date: 20120928
  Serious: Yes (Hospitalization)
  Sender: FDA-Public Use
  Company Number: FR-BAXTER-2012BAX010187

PATIENT
  Sex: Male
  Weight: 9.655 kg

DRUGS (1)
  1. KIOVIG [Suspect]
     Indication: KAWASAKI'S DISEASE
     Route: 042
     Dates: start: 20110317, end: 20110317

REACTIONS (6)
  - RESPIRATORY DISTRESS [None]
  - LIVEDO RETICULARIS [None]
  - SHOCK [None]
  - PERIPHERAL COLDNESS [None]
  - DYSPNOEA [None]
  - TACHYCARDIA [None]
